FAERS Safety Report 7573137-6 (Version None)
Quarter: 2011Q2

REPORT INFORMATION
  Report Type: 
  Country: None (occurrence: None)
  Receive Date: 20110525
  Receipt Date: 20110415
  Transmission Date: 20111010
  Serious: Yes (Hospitalization)
  Sender: FDA-Public Use
  Company Number: 326742

PATIENT
  Age: 71 Year
  Sex: Male
  Weight: 81.6 kg

DRUGS (1)
  1. VICTOZA [Suspect]
     Indication: DIABETES MELLITUS
     Dates: end: 20110301

REACTIONS (1)
  - PANCREATITIS ACUTE [None]
